FAERS Safety Report 7482133-9 (Version None)
Quarter: 2011Q2

REPORT INFORMATION
  Report Type: 
  Country: None (occurrence: None)
  Receive Date: 20110516
  Receipt Date: 20110509
  Transmission Date: 20111010
  Serious: No
  Sender: FDA-Public Use
  Company Number: US-PFIZER INC-2011099952

PATIENT
  Sex: Female
  Weight: 80.7 kg

DRUGS (7)
  1. CHANTIX [Suspect]
     Dosage: 1 MG, 2X/DAY
     Route: 048
     Dates: start: 20110401
  2. EFFEXOR [Concomitant]
     Indication: DEPRESSION
     Dosage: 150 MG, 1X/DAY (IN MORNING)
  3. ALLEGRA [Concomitant]
     Indication: HYPERSENSITIVITY
     Dosage: 180 MG, 1X/DAY
  4. ABILIFY [Concomitant]
     Indication: BIPOLAR DISORDER
     Dosage: 15 MG DAILY (5 MG IN THE MORNING AND 10 MG IN THE EVENING)
  5. CHANTIX [Suspect]
     Indication: SMOKING CESSATION THERAPY
     Dosage: 0.5 MG, 1X/DAY
     Route: 048
     Dates: start: 20110401
  6. PREVACID [Concomitant]
     Indication: GASTROOESOPHAGEAL REFLUX DISEASE
     Dosage: 30 MG, 1X/DAY
  7. CRESTOR [Concomitant]
     Indication: BLOOD CHOLESTEROL INCREASED
     Dosage: 30 MG, 1X/DAY

REACTIONS (3)
  - MOOD ALTERED [None]
  - DRUG INEFFECTIVE [None]
  - HEADACHE [None]
